FAERS Safety Report 5353023-2 (Version None)
Quarter: 2007Q2

REPORT INFORMATION
  Report Type: 
  Country: None (occurrence: None)
  Receive Date: 20070611
  Receipt Date: 20070529
  Transmission Date: 20071010
  Serious: Yes (Hospitalization)
  Sender: FDA-Public Use
  Company Number: JP-AMGEN-US228470

PATIENT
  Sex: Female

DRUGS (3)
  1. ENBREL [Suspect]
     Indication: RHEUMATOID ARTHRITIS
     Dosage: UNSPECIFIED
     Route: 058
     Dates: start: 20060207, end: 20070330
  2. PROGRAF [Concomitant]
     Dosage: UNSPECIFIED
     Dates: start: 20061105, end: 20070330
  3. RHEUMATREX [Concomitant]
     Dosage: UNSPECIFIED
     Dates: end: 20061105

REACTIONS (3)
  - IDIOPATHIC THROMBOCYTOPENIC PURPURA [None]
  - PAIN [None]
  - PARAESTHESIA [None]
